FAERS Safety Report 17239171 (Version 1)
Quarter: 2020Q1

REPORT INFORMATION
  Report Type: Spontaneous
  Country: US (occurrence: US)
  Receive Date: 20200106
  Receipt Date: 20200106
  Transmission Date: 20200409
  Serious: No
  Sender: FDA-Public Use
  Company Number: US-ABBVIE-19K-163-2767664-00

PATIENT
  Age: 59 Year
  Sex: Female

DRUGS (8)
  1. VENCLEXTA [Suspect]
     Active Substance: VENETOCLAX
     Route: 048
     Dates: start: 20190211, end: 20190211
  2. RITUXAN [Suspect]
     Active Substance: RITUXIMAB
     Indication: CHRONIC LYMPHOCYTIC LEUKAEMIA
     Route: 041
     Dates: start: 20190225, end: 2019
  3. RITUXAN [Suspect]
     Active Substance: RITUXIMAB
     Route: 041
     Dates: start: 20190325
  4. VENCLEXTA [Suspect]
     Active Substance: VENETOCLAX
     Indication: CHRONIC LYMPHOCYTIC LEUKAEMIA
     Route: 048
     Dates: start: 20190121, end: 20190121
  5. VENCLEXTA [Suspect]
     Active Substance: VENETOCLAX
     Route: 048
     Dates: start: 20190128, end: 20190128
  6. VIVELLE-DOT [Concomitant]
     Active Substance: ESTRADIOL
     Indication: PRODUCT USED FOR UNKNOWN INDICATION
     Route: 062
  7. VENCLEXTA [Suspect]
     Active Substance: VENETOCLAX
     Route: 048
     Dates: start: 20190204, end: 20190204
  8. VENCLEXTA [Suspect]
     Active Substance: VENETOCLAX
     Route: 048
     Dates: start: 20190218

REACTIONS (6)
  - Urticaria [Recovered/Resolved]
  - Breast tenderness [Not Recovered/Not Resolved]
  - Breast pain [Not Recovered/Not Resolved]
  - Breast swelling [Not Recovered/Not Resolved]
  - Breast enlargement [Not Recovered/Not Resolved]
  - Breast discomfort [Not Recovered/Not Resolved]

NARRATIVE: CASE EVENT DATE: 20190225
